FAERS Safety Report 15859021 (Version 2)
Quarter: 2019Q1

REPORT INFORMATION
  Report Type: Spontaneous
  Country: FR (occurrence: FR)
  Receive Date: 20190123
  Receipt Date: 20190129
  Transmission Date: 20190417
  Serious: Yes (Death, Hospitalization, Other)
  Sender: FDA-Public Use
  Company Number: FR-SA-2019SA013862

PATIENT
  Age: 59 Year
  Sex: Male
  Weight: 87 kg

DRUGS (10)
  1. RITUXIMAB. [Concomitant]
     Active Substance: RITUXIMAB
  2. VALACYCLOVIR [Concomitant]
     Active Substance: VALACYCLOVIR HYDROCHLORIDE
     Indication: PROPHYLAXIS
  3. CYTARABINE. [Concomitant]
     Active Substance: CYTARABINE
     Dosage: 400 MG/M2
  4. OXALIPLATIN. [Suspect]
     Active Substance: OXALIPLATIN
     Indication: MANTLE CELL LYMPHOMA
     Dosage: UNK UNK, UNK
  5. CYTARABINE. [Concomitant]
     Active Substance: CYTARABINE
     Dosage: UNK
  6. ETOPOSIDE. [Concomitant]
     Active Substance: ETOPOSIDE
     Dosage: 400 MG/M2
  7. MELPHALAN. [Concomitant]
     Active Substance: MELPHALAN
     Dosage: 140 MG/M2
  8. FLUCONAZOLE. [Concomitant]
     Active Substance: FLUCONAZOLE
     Indication: PROPHYLAXIS
  9. DEXAMETHASONE. [Concomitant]
     Active Substance: DEXAMETHASONE
  10. BICNU [Concomitant]
     Active Substance: CARMUSTINE
     Dosage: 300 MG/M2

REACTIONS (22)
  - Coagulopathy [Recovering/Resolving]
  - Blood alkaline phosphatase increased [Recovering/Resolving]
  - Anuria [Recovering/Resolving]
  - Fluid retention [Recovering/Resolving]
  - Plasminogen activator inhibitor increased [Recovering/Resolving]
  - Hepatitis fulminant [Recovering/Resolving]
  - Lactic acidosis [Not Recovered/Not Resolved]
  - Acute respiratory distress syndrome [Unknown]
  - Blood creatinine increased [Recovering/Resolving]
  - Hepatic failure [Recovering/Resolving]
  - Liver disorder [Unknown]
  - Multiple organ dysfunction syndrome [Fatal]
  - Thrombocytopenia [Recovering/Resolving]
  - Hepatomegaly [Recovering/Resolving]
  - International normalised ratio increased [Recovering/Resolving]
  - Transaminases increased [Recovered/Resolved]
  - Ascites [Recovering/Resolving]
  - Renal injury [Recovered/Resolved]
  - Venoocclusive liver disease [Recovering/Resolving]
  - Weight increased [Recovering/Resolving]
  - Intestinal ischaemia [Unknown]
  - Haemodynamic instability [Unknown]
